FAERS Safety Report 11859211 (Version 1)
Quarter: 2015Q4

REPORT INFORMATION
  Report Type: Spontaneous
  Country: AU (occurrence: AU)
  Receive Date: 20151222
  Receipt Date: 20151222
  Transmission Date: 20160305
  Serious: Yes (Hospitalization)
  Sender: FDA-Public Use
  Company Number: AU-CELGENE-AUS-2015121698

PATIENT
  Age: 82 Year
  Sex: Male

DRUGS (1)
  1. AZACITIDINE INJECTABLE [Suspect]
     Active Substance: AZACITIDINE
     Indication: ACUTE MYELOID LEUKAEMIA
     Dosage: 165 MILLIGRAM
     Route: 065
     Dates: start: 20150518

REACTIONS (6)
  - Upper limb fracture [Unknown]
  - Spinal fracture [Unknown]
  - Rectal haemorrhage [Unknown]
  - Lower limb fracture [Unknown]
  - Urinary retention [Unknown]
  - Disorientation [Unknown]

NARRATIVE: CASE EVENT DATE: 201512
